FAERS Safety Report 19175232 (Version 1)
Quarter: 2021Q2

REPORT INFORMATION
  Report Type: Spontaneous
  Country: US (occurrence: US)
  Receive Date: 20210423
  Receipt Date: 20210423
  Transmission Date: 20210717
  Serious: Yes (Life-Threatening, Hospitalization, Other)
  Sender: FDA-Public Use
  Company Number: US-BRISTOL-MYERS SQUIBB COMPANY-BMS-2021-037020

PATIENT
  Age: 70 Year
  Sex: Female

DRUGS (1)
  1. WARFARIN SODIUM. [Suspect]
     Active Substance: WARFARIN SODIUM
     Indication: PRODUCT USED FOR UNKNOWN INDICATION
     Dosage: DAILY
     Route: 065

REACTIONS (7)
  - Subcapsular renal haematoma [Unknown]
  - Haematuria [Unknown]
  - Contusion [Unknown]
  - Haemothorax [Recovered/Resolved]
  - Haemoglobin decreased [Unknown]
  - Splenic haemorrhage [Unknown]
  - Anticoagulation drug level above therapeutic [Unknown]
